FAERS Safety Report 7005759-5 (Version None)
Quarter: 2010Q3

REPORT INFORMATION
  Report Type: 
  Country: None (occurrence: None)
  Receive Date: 20100921
  Receipt Date: 20100908
  Transmission Date: 20110219
  Serious: Yes (Hospitalization)
  Sender: FDA-Public Use
  Company Number: AU-ELI_LILLY_AND_COMPANY-AU201009001950

PATIENT
  Sex: Male

DRUGS (12)
  1. GEMCITABINE HCL [Suspect]
     Indication: PANCREATIC CARCINOMA METASTATIC
     Dosage: 1000 MG/M2, OTHER
     Route: 065
     Dates: start: 20100513
  2. PACLITAXEL [Suspect]
     Indication: PANCREATIC CARCINOMA METASTATIC
     Dosage: 125 MG/M2, OTHER
     Route: 065
     Dates: start: 20100513
  3. NOVOMIX                            /01475801/ [Concomitant]
     Indication: DIABETES MELLITUS
     Route: 058
     Dates: start: 20100401
  4. PANTOPRAZOLE [Concomitant]
     Indication: GASTROOESOPHAGEAL REFLUX DISEASE
     Route: 048
     Dates: start: 20100430
  5. MS CONTIN [Concomitant]
     Indication: PAIN
     Route: 048
     Dates: start: 20100430
  6. AMITRIPTYLLIN [Concomitant]
     Indication: PAIN
     Route: 048
     Dates: start: 20100401
  7. COLOXYL WITH SENNA [Concomitant]
     Indication: CONSTIPATION
     Dates: start: 20100401
  8. MORPHINE [Concomitant]
     Indication: PAIN
     Dates: start: 20100401
  9. NULYTELY [Concomitant]
     Indication: CONSTIPATION
     Dates: start: 20100401
  10. DEXAMETHASONE [Concomitant]
     Indication: PROPHYLAXIS
     Dates: start: 20100513
  11. GRANISETRON HCL [Concomitant]
     Indication: PROPHYLAXIS
     Route: 048
     Dates: start: 20100513
  12. ALDACTONE [Concomitant]
     Indication: OEDEMA PERIPHERAL
     Dates: start: 20100729

REACTIONS (1)
  - LOWER RESPIRATORY TRACT INFECTION [None]
